FAERS Safety Report 5319717-X (Version None)
Quarter: 2007Q2

REPORT INFORMATION
  Report Type: 
  Country: None (occurrence: None)
  Receive Date: 20070502
  Receipt Date: 20070412
  Transmission Date: 20071010
  Serious: Yes (Disabling, Other)
  Sender: FDA-Public Use
  Company Number: 2007JP001231

PATIENT
  Age: 16 Year
  Sex: Male
  Weight: 40 kg

DRUGS (9)
  1. PROGRAF [Suspect]
     Indication: BONE MARROW TRANSPLANT
     Dosage: 0.35 MG
     Dates: start: 20051122, end: 20060216
  2. PREDONINE(PREDNISOLONE) FORMULATION UNKNOWN [Suspect]
     Indication: BONE MARROW TRANSPLANT
     Dosage: 30 MG
     Dates: start: 20051122, end: 20060309
  3. FUNGUARD (MICAFUNGIN) [Concomitant]
  4. VALTREX [Concomitant]
  5. FOSCAVIR [Concomitant]
  6. CIDOFOVIR (CIDOFOVIR) [Concomitant]
  7. DENOSINE (GANCICLOVIR) [Concomitant]
  8. FIRSTCIN (CEFOZOPRAN HYDROCHLORIDE) [Concomitant]
  9. VORICONAZOLE (VORICONAZOLE) [Concomitant]

REACTIONS (9)
  - BRONCHOPULMONARY ASPERGILLOSIS [None]
  - GENITAL HERPES [None]
  - HERPES ZOSTER [None]
  - IRITIS [None]
  - LACRIMATION INCREASED [None]
  - NECROTISING HERPETIC RETINOPATHY [None]
  - RASH [None]
  - RETINAL TEAR [None]
  - VISUAL FIELD DEFECT [None]
